FAERS Safety Report 25700408 (Version 1)
Quarter: 2025Q3

REPORT INFORMATION
  Report Type: Spontaneous
  Country: GB (occurrence: GB)
  Receive Date: 20250819
  Receipt Date: 20250819
  Transmission Date: 20251020
  Serious: Yes (Hospitalization, Other)
  Sender: GLAND PHARMA LTD
  Company Number: GB-GLANDPHARMA-GB-2025GLNLIT01692

PATIENT
  Age: 8 Decade
  Sex: Female

DRUGS (3)
  1. VANCOMYCIN HYDROCHLORIDE [Suspect]
     Active Substance: VANCOMYCIN HYDROCHLORIDE
     Indication: Infection prophylaxis
     Route: 065
  2. ERYTHROMYCIN [Suspect]
     Active Substance: ERYTHROMYCIN
     Indication: Intraoperative care
     Route: 065
  3. ASPIRIN [Suspect]
     Active Substance: ASPIRIN
     Route: 065

REACTIONS (2)
  - Deafness neurosensory [Recovered/Resolved]
  - Ototoxicity [Recovered/Resolved]
